FAERS Safety Report 5028518-1 (Version None)
Quarter: 2006Q2

REPORT INFORMATION
  Report Type: 
  Country: None (occurrence: None)
  Receive Date: 20060617
  Receipt Date: 20060606
  Transmission Date: 20061013
  Serious: Yes (Hospitalization)
  Sender: FDA-Public Use
  Company Number: DE-ABBOTT-06P-062-0335478-00

PATIENT
  Sex: Female

DRUGS (5)
  1. KALETRA [Suspect]
     Indication: HIV INFECTION
     Route: 048
     Dates: start: 20060321, end: 20060517
  2. LAMIVUDINE + ZIDOVUDINE [Concomitant]
     Indication: HIV INFECTION
     Route: 048
     Dates: start: 20060316
  3. BACTRIM [Concomitant]
     Indication: ANTIBIOTIC PROPHYLAXIS
     Route: 048
     Dates: start: 20060316, end: 20060501
  4. TELZIR [Concomitant]
     Indication: HIV INFECTION
     Route: 048
     Dates: start: 20060517
  5. RITONAVIR [Concomitant]
     Indication: HIV INFECTION
     Route: 048
     Dates: start: 20060517

REACTIONS (4)
  - ABDOMINAL PAIN [None]
  - COLITIS PSEUDOMEMBRANOUS [None]
  - DIARRHOEA [None]
  - DIARRHOEA HAEMORRHAGIC [None]
